FAERS Safety Report 9822778 (Version 1)
Quarter: 2014Q1

REPORT INFORMATION
  Report Type: Spontaneous
  Country: PL (occurrence: PL)
  Receive Date: 20140116
  Receipt Date: 20140116
  Transmission Date: 20141002
  Serious: Yes (Hospitalization)
  Sender: FDA-Public Use
  Company Number: PHHY2014PL003305

PATIENT
  Age: 75 Year
  Sex: Female
  Weight: 90 kg

DRUGS (7)
  1. OSPAMOX [Suspect]
     Indication: GASTRITIS
     Dosage: 1 G, BID
     Route: 048
     Dates: start: 20130728
  2. OSPAMOX [Suspect]
     Indication: DUODENITIS
  3. METRONIDAZOLE [Suspect]
     Indication: GASTRITIS
     Dosage: 1 G, QD
     Route: 048
     Dates: start: 20130728
  4. METRONIDAZOLE [Suspect]
     Indication: DUODENITIS
  5. TETRACYCLINUM [Suspect]
     Indication: GASTRITIS
     Dosage: 1 G, QD
     Route: 048
     Dates: start: 20130728
  6. TETRACYCLINUM [Suspect]
     Indication: DUODENITIS
  7. TRANSTEC [Suspect]
     Indication: SPINAL OSTEOARTHRITIS
     Dosage: 5 MG, QD
     Route: 062
     Dates: start: 20130729

REACTIONS (1)
  - Petechiae [Unknown]
